FAERS Safety Report 6298181-0 (Version None)
Quarter: 2009Q3

REPORT INFORMATION
  Report Type: 
  Country: None (occurrence: None)
  Receive Date: 20090805
  Receipt Date: 20090731
  Transmission Date: 20100115
  Serious: Yes (Other)
  Sender: FDA-Public Use
  Company Number: DK-AMGEN-US358542

PATIENT
  Sex: Female

DRUGS (2)
  1. ENBREL [Suspect]
     Indication: RHEUMATOID ARTHRITIS
     Route: 058
     Dates: start: 20071030, end: 20080407
  2. METHOTREXATE [Concomitant]
     Dosage: UNKNOWN
     Route: 048
     Dates: start: 20070319, end: 20071113

REACTIONS (1)
  - PROTEINURIA [None]
